FAERS Safety Report 5109842-0 (Version None)
Quarter: 2006Q3

REPORT INFORMATION
  Report Type: 
  Country: None (occurrence: None)
  Receive Date: 20060918
  Receipt Date: 20060918
  Transmission Date: 20061208
  Serious: Yes (Hospitalization)
  Sender: FDA-Public Use
  Company Number: None

PATIENT
  Age: 51 Year
  Sex: Female
  Weight: 56.6996 kg

DRUGS (3)
  1. CIPROFLAXIN [Suspect]
     Indication: BACTERIAL INFECTION
  2. CIPROFLAXIN [Suspect]
     Indication: GASTROINTESTINAL DISORDER
  3. PROZAC [Suspect]
     Indication: DEPRESSION
     Dosage: 20 MG  5 DAY THEN 40 DAILY

REACTIONS (2)
  - DEPRESSION [None]
  - SUICIDAL IDEATION [None]
